FAERS Safety Report 11811207 (Version 1)
Quarter: 2015Q4

REPORT INFORMATION
  Report Type: Report from Study
  Country: US (occurrence: US)
  Receive Date: 20151208
  Receipt Date: 20151208
  Transmission Date: 20160305
  Serious: Yes (Other)
  Sender: FDA-Public Use
  Company Number: CHPA2015US014399

PATIENT
  Age: 54 Year
  Sex: Female

DRUGS (1)
  1. EX-LAX REGULAR STRENGTH STIMULANT LAXATIVE [Suspect]
     Active Substance: SENNOSIDES
     Indication: CONSTIPATION
     Route: 065

REACTIONS (4)
  - Syncope [Unknown]
  - Constipation [Unknown]
  - Diarrhoea [Unknown]
  - Muscle spasms [Unknown]
